FAERS Safety Report 5004332-8 (Version None)
Quarter: 2006Q2

REPORT INFORMATION
  Report Type: 
  Country: None (occurrence: None)
  Receive Date: 20060511
  Receipt Date: 20060421
  Transmission Date: 20061013
  Serious: No
  Sender: FDA-Public Use
  Company Number: 20062935

PATIENT
  Age: 38 Year
  Sex: Female

DRUGS (1)
  1. LIORESAL INTRATHERAL (BACLOFEN INJECTION) [Suspect]
     Indication: MUSCLE SPASTICITY
     Dosage: DAILY, INTRATHECAL
     Route: 037

REACTIONS (4)
  - FAT EMBOLISM [None]
  - HEADACHE [None]
  - HYPERACUSIS [None]
  - PHOTOPHOBIA [None]
